FAERS Safety Report 16221861 (Version 2)
Quarter: 2019Q2

REPORT INFORMATION
  Report Type: Report from Study
  Country: ZA (occurrence: ZA)
  Receive Date: 20190422
  Receipt Date: 20190613
  Transmission Date: 20190711
  Serious: Yes (Life-Threatening, Other)
  Sender: FDA-Public Use
  Company Number: ZA-SA-2019SA064001

PATIENT
  Age: 60 Year
  Sex: Female

DRUGS (12)
  1. ECOTRIN [Concomitant]
     Active Substance: ASPIRIN
     Dosage: AFTER BREAKFAST- 81 MG, QD
     Dates: start: 20180305
  2. FORXIGA [Concomitant]
     Active Substance: DAPAGLIFLOZIN
     Dosage: AFTER SUPPER- 10 MG, QD
     Dates: start: 20190205
  3. EPILIZINE [Concomitant]
     Active Substance: VALPROATE SODIUM
     Dosage: AFTER BREAKFAST- 500 MG, AFTER SUPPER- 500 MG, BID
     Dates: start: 20140305
  4. GLUCOPHAGE [Concomitant]
     Active Substance: METFORMIN HYDROCHLORIDE
     Dosage: AFTER LUNCH- 1000 MG, AFTER BREAKFAST- 1000 MG, BID
     Dates: start: 20180305
  5. NO STUDY DRUG GIVEN [Suspect]
     Active Substance: UNSPECIFIED INGREDIENT
     Dosage: UNK
  6. PEARINDA [Concomitant]
     Active Substance: PERINDOPRIL ERBUMINE
     Dosage: UNK
     Dates: start: 20180307
  7. ADCO-ATENOLOL [Concomitant]
     Active Substance: ATENOLOL
     Dosage: 25 U, QD
     Dates: start: 20181004
  8. ADCO-SIMVASTATIN [Concomitant]
     Active Substance: SIMVASTATIN
     Dosage: BED TIME- 40 MG, QD
     Dates: start: 20090305
  9. ELTROXIN [Concomitant]
     Active Substance: LEVOTHYROXINE
     Dosage: AFTER BREAKFAST- 0.1 MG, QD
     Dates: start: 20090305
  10. INSULIN GLULISINE [Suspect]
     Active Substance: INSULIN GLULISINE
     Dosage: BEFORE BREAKFAST- 10UNITS, BEFORE SUPPER- 15UNITS, BEFORE LUNCH- 15UNITS, TID
     Dates: start: 20160213
  11. TOUJEO [Suspect]
     Active Substance: INSULIN GLARGINE
     Dosage: 35 U, HS
     Dates: start: 20180227
  12. RISNIA [Concomitant]
     Active Substance: RISPERIDONE
     Dosage: AFTER SUPPER- 2 MG, QD
     Dates: start: 20140305

REACTIONS (8)
  - Renal impairment [Unknown]
  - Hypoglycaemia [Recovered/Resolved]
  - Rhinorrhoea [Recovered/Resolved]
  - Hypoglycaemia [Recovered/Resolved]
  - Rash [Recovered/Resolved]
  - Dizziness [Recovered/Resolved]
  - Hypoglycaemia [Recovered/Resolved]
  - Glycosylated haemoglobin increased [Unknown]

NARRATIVE: CASE EVENT DATE: 20190313
